FAERS Safety Report 23293267 (Version 1)
Quarter: 2023Q4

REPORT INFORMATION
  Report Type: Report from Study
  Country: HR (occurrence: None)
  Receive Date: 20231213
  Receipt Date: 20231213
  Transmission Date: 20240110
  Serious: Yes (Hospitalization, Other)
  Sender: FDA-Public Use
  Company Number: 2023A278408

PATIENT
  Age: 68 Year
  Sex: Female
  Weight: 130 kg

DRUGS (1)
  1. DAPAGLIFLOZIN [Suspect]
     Active Substance: DAPAGLIFLOZIN
     Indication: Type 2 diabetes mellitus
     Dosage: 10.0MG ONCE/SINGLE ADMINISTRATION
     Route: 048

REACTIONS (13)
  - Haemorrhoids [Unknown]
  - Hiatus hernia [Unknown]
  - Bundle branch block left [Unknown]
  - Pulmonary hypertension [Unknown]
  - Venous thrombosis [Unknown]
  - Pulmonary oedema [Unknown]
  - Atrial fibrillation [Unknown]
  - Diverticulitis [Unknown]
  - Duodenitis [Unknown]
  - Gastrointestinal disorder [Unknown]
  - Weight decreased [Unknown]
  - Hypothyroidism [Unknown]
  - Hypertension [Unknown]
